FAERS Safety Report 8513708-3 (Version None)
Quarter: 2012Q3

REPORT INFORMATION
  Report Type: 
  Country: None (occurrence: None)
  Receive Date: 20120717
  Receipt Date: 20120710
  Transmission Date: 20120928
  Serious: Yes (Other)
  Sender: FDA-Public Use
  Company Number: US-CELGENEUS-163-21880-12071341

PATIENT
  Sex: Male

DRUGS (1)
  1. REVLIMID [Suspect]
     Indication: MULTIPLE MYELOMA
     Dosage: 25 MILLIGRAM
     Route: 048
     Dates: start: 20111222

REACTIONS (7)
  - CARPAL TUNNEL SYNDROME [None]
  - FATIGUE [None]
  - PAIN [None]
  - HAEMORRHAGE SUBCUTANEOUS [None]
  - ABDOMINAL DISCOMFORT [None]
  - DIARRHOEA [None]
  - DYSGEUSIA [None]
